FAERS Safety Report 19889855 (Version 1)
Quarter: 2021Q3

REPORT INFORMATION
  Report Type: Spontaneous
  Country: CA (occurrence: CA)
  Receive Date: 20210928
  Receipt Date: 20210928
  Transmission Date: 20211014
  Serious: Yes (Other)
  Sender: FDA-Public Use
  Company Number: CA-TEVA-2021-CA-1958478

PATIENT
  Age: 53 Year
  Sex: Female
  Weight: 87 kg

DRUGS (6)
  1. FASENRA [Suspect]
     Active Substance: BENRALIZUMAB
     Indication: PRODUCT USED FOR UNKNOWN INDICATION
     Route: 065
  2. ALVESCO [Suspect]
     Active Substance: CICLESONIDE
     Dosage: 4 DOSAGE FORMS DAILY;
     Route: 065
  3. SYMBICORT [Suspect]
     Active Substance: BUDESONIDE\FORMOTEROL FUMARATE DIHYDRATE
     Indication: PRODUCT USED FOR UNKNOWN INDICATION
     Dosage: 4 DOSAGE FORMS DAILY;
     Route: 065
  4. XOLAIR [Suspect]
     Active Substance: OMALIZUMAB
     Indication: PRODUCT USED FOR UNKNOWN INDICATION
     Route: 065
  5. SALBUTAMOL [Suspect]
     Active Substance: ALBUTEROL
     Indication: PRODUCT USED FOR UNKNOWN INDICATION
     Route: 065
  6. PREDNISONE. [Suspect]
     Active Substance: PREDNISONE
     Indication: PRODUCT USED FOR UNKNOWN INDICATION
     Route: 065

REACTIONS (11)
  - Blood count abnormal [Unknown]
  - Therapeutic product effect incomplete [Unknown]
  - Dyspnoea [Unknown]
  - Hypersensitivity [Unknown]
  - Obstructive airways disorder [Unknown]
  - Asthma [Unknown]
  - Nasopharyngitis [Unknown]
  - Cough [Unknown]
  - Sleep disorder due to a general medical condition [Unknown]
  - Wheezing [Unknown]
  - Loss of personal independence in daily activities [Unknown]
